FAERS Safety Report 15932600 (Version 3)
Quarter: 2019Q3

REPORT INFORMATION
  Report Type: Spontaneous
  Country: JP (occurrence: JP)
  Receive Date: 20190207
  Receipt Date: 20190724
  Transmission Date: 20191004
  Serious: Yes (Death)
  Sender: FDA-Public Use
  Company Number: JP-KYOWAKIRIN-2019AKK001853

PATIENT

DRUGS (37)
  1. POTELIGEO [Suspect]
     Active Substance: MOGAMULIZUMAB-KPKC
     Dosage: 70 MG
     Route: 041
     Dates: start: 20170926, end: 20170926
  2. POTELIGEO [Suspect]
     Active Substance: MOGAMULIZUMAB-KPKC
     Dosage: 70 MG
     Route: 041
     Dates: start: 20171128, end: 20171128
  3. DOXORUBICIN [Suspect]
     Active Substance: DOXORUBICIN
     Indication: ADULT T-CELL LYMPHOMA/LEUKAEMIA
     Dosage: 90 MG
     Route: 065
     Dates: start: 20170802, end: 20170802
  4. DOXORUBICIN [Suspect]
     Active Substance: DOXORUBICIN
     Dosage: 90 MG
     Route: 065
     Dates: start: 20171109, end: 20171109
  5. DOXORUBICIN [Suspect]
     Active Substance: DOXORUBICIN
     Dosage: 50 MG
     Route: 065
     Dates: start: 20171211, end: 20171211
  6. VINCRISTINE [Suspect]
     Active Substance: VINCRISTINE
     Dosage: 2 MG
     Route: 065
     Dates: start: 20170829, end: 20170829
  7. CARBOPLATIN. [Suspect]
     Active Substance: CARBOPLATIN
     Dosage: 400 MG
     Route: 065
     Dates: start: 20180124, end: 20180124
  8. DOXORUBICIN [Suspect]
     Active Substance: DOXORUBICIN
     Dosage: 50 MG
     Route: 065
     Dates: start: 20180117, end: 20180117
  9. VINCRISTINE [Suspect]
     Active Substance: VINCRISTINE
     Dosage: 2 MG
     Route: 065
     Dates: start: 20171026, end: 20171026
  10. PREDONINE [Suspect]
     Active Substance: PREDNISOLONE
     Dosage: 40MG, DURING MLSG15 THERAPY
     Route: 065
     Dates: start: 20171204, end: 20180124
  11. POTELIGEO [Suspect]
     Active Substance: MOGAMULIZUMAB-KPKC
     Indication: ADULT T-CELL LYMPHOMA/LEUKAEMIA
     Dosage: 70 MG
     Route: 041
     Dates: start: 20180109, end: 20180109
  12. VINCRISTINE [Suspect]
     Active Substance: VINCRISTINE
     Dosage: 1.5 MG
     Route: 065
     Dates: start: 20180110, end: 20180110
  13. RANIMUSTINE [Suspect]
     Active Substance: RANIMUSTINE
     Indication: ADULT T-CELL LYMPHOMA/LEUKAEMIA
     Dosage: 100 MG
     Route: 065
     Dates: start: 20171211, end: 20171211
  14. ETOPOSIDE. [Suspect]
     Active Substance: ETOPOSIDE
     Indication: ADULT T-CELL LYMPHOMA/LEUKAEMIA
     Dosage: 150 MG
     Route: 065
     Dates: start: 20171218, end: 20171218
  15. REVLIMID [Concomitant]
     Active Substance: LENALIDOMIDE
     Dosage: UNK
     Route: 048
  16. POTELIGEO [Suspect]
     Active Substance: MOGAMULIZUMAB-KPKC
     Dosage: 70 MG
     Route: 041
     Dates: start: 20170828, end: 20170828
  17. DOXORUBICIN [Suspect]
     Active Substance: DOXORUBICIN
     Dosage: 90 MG
     Route: 065
     Dates: start: 20171026, end: 20171026
  18. RANIMUSTINE [Suspect]
     Active Substance: RANIMUSTINE
     Dosage: 100 MG
     Route: 065
     Dates: start: 20180117, end: 20180117
  19. ETOPOSIDE. [Suspect]
     Active Substance: ETOPOSIDE
     Dosage: 150 MG
     Route: 065
     Dates: start: 20180124, end: 20180124
  20. CYCLOPHOSPHAMIDE. [Suspect]
     Active Substance: CYCLOPHOSPHAMIDE
     Indication: ADULT T-CELL LYMPHOMA/LEUKAEMIA
     Dosage: 1300 MG
     Route: 065
     Dates: start: 20170802, end: 20170802
  21. CYCLOPHOSPHAMIDE. [Suspect]
     Active Substance: CYCLOPHOSPHAMIDE
     Dosage: 1300 MG
     Route: 065
     Dates: start: 20170927, end: 20170927
  22. CYCLOPHOSPHAMIDE. [Suspect]
     Active Substance: CYCLOPHOSPHAMIDE
     Dosage: 600 MG
     Route: 065
     Dates: start: 20180110, end: 20180110
  23. DOXORUBICIN [Suspect]
     Active Substance: DOXORUBICIN
     Dosage: 90 MG
     Route: 065
     Dates: start: 20170829, end: 20170829
  24. DOXORUBICIN [Suspect]
     Active Substance: DOXORUBICIN
     Dosage: 90 MG
     Route: 065
     Dates: start: 20170927, end: 20170927
  25. VINCRISTINE [Suspect]
     Active Substance: VINCRISTINE
     Dosage: 1.5 MG
     Route: 065
     Dates: start: 20171204, end: 20171204
  26. POTELIGEO [Suspect]
     Active Substance: MOGAMULIZUMAB-KPKC
     Dosage: 70 MG, 1X/2 WEEKS
     Route: 041
     Dates: start: 20171025, end: 20171108
  27. CYCLOPHOSPHAMIDE. [Suspect]
     Active Substance: CYCLOPHOSPHAMIDE
     Dosage: 1300 MG
     Route: 065
     Dates: start: 20171026, end: 20171026
  28. PREDONINE [Suspect]
     Active Substance: PREDNISOLONE
     Indication: ADULT T-CELL LYMPHOMA/LEUKAEMIA
     Dosage: 80MG, DURING CHOP THERAPY
     Route: 065
     Dates: start: 20170802, end: 20171109
  29. CYCLOPHOSPHAMIDE. [Suspect]
     Active Substance: CYCLOPHOSPHAMIDE
     Dosage: 1300 MG
     Route: 065
     Dates: start: 20171109, end: 20171109
  30. CYCLOPHOSPHAMIDE. [Suspect]
     Active Substance: CYCLOPHOSPHAMIDE
     Dosage: 600 MG
     Route: 065
     Dates: start: 20171204, end: 20171204
  31. DOXORUBICIN [Suspect]
     Active Substance: DOXORUBICIN
     Dosage: 60 MG
     Route: 065
     Dates: start: 20171204, end: 20171204
  32. DOXORUBICIN [Suspect]
     Active Substance: DOXORUBICIN
     Dosage: 60 MG
     Route: 065
     Dates: start: 20180110, end: 20180110
  33. VINCRISTINE [Suspect]
     Active Substance: VINCRISTINE
     Dosage: 2 MG
     Route: 065
     Dates: start: 20170927, end: 20170927
  34. CYCLOPHOSPHAMIDE. [Suspect]
     Active Substance: CYCLOPHOSPHAMIDE
     Dosage: 1300 MG
     Route: 065
     Dates: start: 20170829, end: 20170829
  35. VINCRISTINE [Suspect]
     Active Substance: VINCRISTINE
     Indication: ADULT T-CELL LYMPHOMA/LEUKAEMIA
     Dosage: 2 MG
     Route: 065
     Dates: start: 20170802, end: 20170802
  36. VINCRISTINE [Suspect]
     Active Substance: VINCRISTINE
     Dosage: 2 MG
     Route: 065
     Dates: start: 20171109, end: 20171109
  37. CARBOPLATIN. [Suspect]
     Active Substance: CARBOPLATIN
     Indication: ADULT T-CELL LYMPHOMA/LEUKAEMIA
     Dosage: 400 MG
     Route: 065
     Dates: start: 20171218, end: 20171218

REACTIONS (2)
  - Rash [Unknown]
  - Disease progression [Fatal]

NARRATIVE: CASE EVENT DATE: 201809
